FAERS Safety Report 10745519 (Version 3)
Quarter: 2015Q1

REPORT INFORMATION
  Report Type: Spontaneous
  Country: US (occurrence: US)
  Receive Date: 20150128
  Receipt Date: 20150302
  Transmission Date: 20150721
  Serious: Yes (Other)
  Sender: FDA-Public Use
  Company Number: US-AMGEN-USASP2015006663

PATIENT
  Age: 58 Year
  Sex: Female
  Weight: 71.2 kg

DRUGS (17)
  1. SYNTHROID [Concomitant]
     Active Substance: LEVOTHYROXINE SODIUM
     Dosage: 100 MUG, QD
     Route: 048
  2. VENTOLIN HFA [Concomitant]
     Active Substance: ALBUTEROL SULFATE
     Dosage: 108 (90 BASE)MCG/ACT AEROSOL SOLN AS NEEDED
  3. SIMVASTATIN. [Concomitant]
     Active Substance: SIMVASTATIN
     Dosage: 20 MG, QHS
     Route: 048
  4. TRAZODONE [Concomitant]
     Active Substance: TRAZODONE HYDROCHLORIDE
     Indication: ANKYLOSING SPONDYLITIS
     Dosage: 1 1/2 TABLETS 100 MG, QHS FOR 90 DAYS
     Route: 048
     Dates: start: 20141217
  5. ESTRACE [Concomitant]
     Active Substance: ESTRADIOL
     Dosage: 1 MG, THREE DAYS WEEKLY
     Route: 048
  6. NEXIUM [Concomitant]
     Active Substance: ESOMEPRAZOLE MAGNESIUM
     Dosage: 40 MG, QD
     Route: 048
  7. MOBIC [Concomitant]
     Active Substance: MELOXICAM
     Indication: PAIN
     Dosage: 15 MG, 1 TABLET DAILY AS NECESSARY
     Route: 048
     Dates: start: 20131223
  8. ENBREL [Suspect]
     Active Substance: ETANERCEPT
     Indication: ANKYLOSING SPONDYLITIS
     Dosage: 50 MG, QWK
     Route: 058
     Dates: start: 20081014
  9. PRED FORTE [Concomitant]
     Active Substance: PREDNISOLONE ACETATE
     Dosage: 1 % SUSPENSION
     Route: 047
  10. CALCIUM 600 + D [Concomitant]
     Active Substance: CALCIUM\VITAMIN D
     Dosage: 1500 MG, UNK
     Route: 048
  11. ELIDEL [Concomitant]
     Active Substance: PIMECROLIMUS
     Dosage: 1 %, PRN
     Route: 061
  12. GABAPENTIN. [Concomitant]
     Active Substance: GABAPENTIN
     Indication: ANKYLOSING SPONDYLITIS
     Dosage: 300 MG ONE CAPSULE, TID FOR 90 DAYS
     Route: 048
     Dates: start: 20141217
  13. FLEXERIL [Concomitant]
     Active Substance: CYCLOBENZAPRINE HYDROCHLORIDE
     Dosage: 10 MG, PRN
     Route: 048
  14. VOLTAREN [Concomitant]
     Active Substance: DICLOFENAC SODIUM
     Dosage: UNK UNK, AS NECESSARY
     Route: 061
  15. L-LYSINE HCL [Concomitant]
     Dosage: 1000 MG, DAILY
     Route: 048
  16. HYOSCYAMINE SULFATE. [Concomitant]
     Active Substance: HYOSCYAMINE SULFATE
     Dosage: 0.125 MG, UNK
     Route: 060
  17. METRONIDAZOLE. [Concomitant]
     Active Substance: METRONIDAZOLE
     Dosage: 0.75 %,1 EXTERNAL PRN

REACTIONS (18)
  - Grip strength decreased [Not Recovered/Not Resolved]
  - Neck pain [Unknown]
  - Constipation [Unknown]
  - Dyspepsia [Unknown]
  - Myalgia [Unknown]
  - Pain in extremity [Unknown]
  - Rotator cuff syndrome [Not Recovered/Not Resolved]
  - Sciatica [Not Recovered/Not Resolved]
  - Fibromyalgia [Unknown]
  - Hypoaesthesia [Unknown]
  - Ligament injury [Unknown]
  - Nerve compression [Not Recovered/Not Resolved]
  - Back pain [Unknown]
  - Carpal tunnel syndrome [Not Recovered/Not Resolved]
  - Pain [Not Recovered/Not Resolved]
  - Insomnia [Unknown]
  - Activities of daily living impaired [Unknown]
  - Diarrhoea [Unknown]

NARRATIVE: CASE EVENT DATE: 201501
